FAERS Safety Report 4873280-6 (Version None)
Quarter: 2006Q1

REPORT INFORMATION
  Report Type: 
  Country: None (occurrence: None)
  Receive Date: 20060103
  Receipt Date: 20051221
  Transmission Date: 20060701
  Serious: Yes (Other)
  Sender: FDA-Public Use
  Company Number: 2005172617

PATIENT
  Age: 28 Year
  Sex: Female
  Weight: 61.2356 kg

DRUGS (4)
  1. SUDAFED 12 HOUR [Suspect]
     Dosage: 30MG, ORAL
     Route: 048
     Dates: start: 20051101, end: 20051101
  2. DRUG, UNSPECIFIED (DRUG, UNSPECIFIED) [Suspect]
  3. CITALOPRAM HYDROBROMIDE [Concomitant]
  4. LORATADINE [Concomitant]

REACTIONS (1)
  - LOSS OF CONSCIOUSNESS [None]
